FAERS Safety Report 4449281-9 (Version None)
Quarter: 2004Q3

REPORT INFORMATION
  Report Type: 
  Country: None (occurrence: None)
  Receive Date: 20040913
  Receipt Date: 20040827
  Transmission Date: 20050211
  Serious: Yes (Hospitalization)
  Sender: FDA-Public Use
  Company Number: 2004-BP-07337BP

PATIENT
  Age: 70 Year
  Sex: Female

DRUGS (1)
  1. CLONIDINE [Suspect]
     Indication: HYPERTENSION
     Dosage: 0.6 MG (0.1 MG, 0.3MG AM, AND 0.3MG PM), PO
     Route: 048
     Dates: start: 20040801, end: 20040824

REACTIONS (1)
  - LOCALISED INFECTION [None]
